FAERS Safety Report 10888708 (Version 2)
Quarter: 2015Q3

REPORT INFORMATION
  Report Type: Report from Study
  Country: BR (occurrence: BR)
  Receive Date: 20150305
  Receipt Date: 20150831
  Transmission Date: 20151125
  Serious: Yes (Other)
  Sender: FDA-Public Use
  Company Number: BR-ABBVIE-15K-020-1353801-00

PATIENT
  Age: 64 Year
  Sex: Female
  Weight: 52 kg

DRUGS (13)
  1. ATENOLOL. [Concomitant]
     Active Substance: ATENOLOL
     Indication: BLOOD PRESSURE ABNORMAL
     Route: 048
     Dates: start: 2007
  2. SYNTHROID [Concomitant]
     Active Substance: LEVOTHYROXINE SODIUM
     Indication: HYPOTHYROIDISM
     Route: 048
     Dates: start: 20050101
  3. CASSIS [Concomitant]
     Indication: INFECTION PROPHYLAXIS
     Route: 048
     Dates: start: 2013
  4. FOLIC ACID. [Concomitant]
     Active Substance: FOLIC ACID
     Indication: RHEUMATOID ARTHRITIS
     Route: 048
     Dates: start: 20150801
  5. METHOTREXATE [Concomitant]
     Active Substance: METHOTREXATE
     Indication: ARTHRITIS
     Route: 048
  6. CRANBERRY. [Concomitant]
     Active Substance: CRANBERRY
     Indication: INFECTION PROPHYLAXIS
     Route: 048
     Dates: start: 2013
  7. CYCLOBENZAPRINE HYDROCHLORIDE. [Concomitant]
     Active Substance: CYCLOBENZAPRINE HYDROCHLORIDE
     Indication: SPINAL PAIN
     Route: 048
     Dates: start: 20150601, end: 20150720
  8. HUMIRA [Suspect]
     Active Substance: ADALIMUMAB
     Indication: RHEUMATOID ARTHRITIS
     Route: 058
     Dates: start: 20111002
  9. CASSIS [Concomitant]
     Route: 048
     Dates: start: 20130801
  10. REUQUINOL [Concomitant]
     Active Substance: HYDROXYCHLOROQUINE SULFATE
     Indication: ARTHRITIS
     Route: 048
  11. CRANBERRY. [Concomitant]
     Active Substance: CRANBERRY
     Route: 048
     Dates: start: 20130801
  12. CALCIUM ALENDRONATE [Concomitant]
     Indication: PRODUCT USED FOR UNKNOWN INDICATION
     Route: 048
     Dates: start: 20050101
  13. ANGIPRESS CD [Concomitant]
     Active Substance: ATENOLOL\CHLORTHALIDONE
     Indication: HYPERTENSION
     Dosage: ATENOLOL / CHLORTHALIDONE /25/12.5MG
     Route: 048
     Dates: start: 20050101

REACTIONS (7)
  - Intervertebral disc protrusion [Unknown]
  - Exostosis [Not Recovered/Not Resolved]
  - Neck pain [Recovering/Resolving]
  - Spinal osteoarthritis [Not Recovered/Not Resolved]
  - Urinary tract infection [Unknown]
  - Hypoaesthesia [Recovering/Resolving]
  - Osteoarthritis [Recovering/Resolving]

NARRATIVE: CASE EVENT DATE: 20120101
